FAERS Safety Report 10163703 (Version 1)
Quarter: 2014Q2

REPORT INFORMATION
  Report Type: Report from Study
  Country: DE (occurrence: NL)
  Receive Date: 20140509
  Receipt Date: 20140509
  Transmission Date: 20141212
  Serious: Yes (Death, Hospitalization)
  Sender: FDA-Public Use
  Company Number: DE-ACTELION-A-US2010-98295

PATIENT
  Age: 69 Year
  Sex: Male

DRUGS (1)
  1. VENTAVIS [Suspect]
     Indication: PRODUCT USED FOR UNKNOWN INDICATION
     Dosage: 6 AMPOULES USED DAILY
     Route: 055
     Dates: start: 20101116

REACTIONS (7)
  - Cardiac failure [Fatal]
  - Infection [Unknown]
  - Sepsis [Unknown]
  - Back pain [Unknown]
  - Oedema peripheral [Unknown]
  - Dizziness [Unknown]
  - Feeling abnormal [Recovering/Resolving]
